FAERS Safety Report 9100267 (Version 2)
Quarter: 2013Q1

REPORT INFORMATION
  Report Type: Spontaneous
  Country: US (occurrence: US)
  Receive Date: 20130215
  Receipt Date: 20130313
  Transmission Date: 20140127
  Serious: Yes (Hospitalization)
  Sender: FDA-Public Use
  Company Number: US-BAYER-2013-019610

PATIENT
  Age: 62 Year
  Sex: Female

DRUGS (22)
  1. BETASERON [Suspect]
     Indication: SECONDARY PROGRESSIVE MULTIPLE SCLEROSIS
     Dosage: 0.25 MG, QOD
     Route: 058
  2. CITALOPRAM [Concomitant]
  3. CLONAZEPAM [Concomitant]
  4. CLONAZEPAM [Concomitant]
     Dosage: 1 MG, QD
  5. SYSTANE [BORIC AC,CACL DIHYDR,MACROGOL,MGCL ANHYDR,KCL,PROPYL GLYC [Concomitant]
     Indication: DRY EYE
     Dosage: 4 TO 5X AS NEEDED
  6. IPRATROPIUM BROMIDE [Concomitant]
     Dosage: 2 SPRAYS EACH NOSTRIL
  7. MIRALAX [Concomitant]
     Dosage: 1 DF, QOD
  8. MULTIVITAMIN [Concomitant]
     Dosage: 2 DF, QD
  9. VITAMIN C [ASCORBIC ACID] [Concomitant]
     Dosage: 2 DF, QD
  10. VITAMIN D NOS [Concomitant]
     Dosage: 1 DF, QD
  11. CALCIUM CITRATE [Concomitant]
     Dosage: 2 DF, TID
  12. BIOTIN [Concomitant]
     Dosage: 1 DF, QD
  13. B12 [Concomitant]
     Dosage: 2 DF, QD
  14. STOOL SOFTENER [Concomitant]
     Dosage: 1 DF, BID
  15. HYDROCHLOROTHIAZIDE [Concomitant]
     Dosage: 0.5 DF, QD
  16. EFEXOR XR [Concomitant]
     Dosage: 3, 1AM, 2PM
  17. BACLOFEN [Concomitant]
     Dosage: 4, 2 AM, 2 PM
  18. SYNTHROID [Concomitant]
     Dosage: 1 DF, QD
  19. GABAPENTIN [Concomitant]
     Dosage: 2, 1AM, 1 PM
  20. ROPINIROLE [Concomitant]
     Dosage: 1 DF, QD
  21. OMEPRAZOLE [Concomitant]
     Dosage: 2, 1AM, 1 PM
  22. BUSPIRONE [Concomitant]

REACTIONS (5)
  - Somnolence [None]
  - Injection site haemorrhage [None]
  - Injection site mass [Not Recovered/Not Resolved]
  - Injection site erythema [Not Recovered/Not Resolved]
  - Hyperkeratosis [None]
